FAERS Safety Report 6572696-X (Version None)
Quarter: 2010Q1

REPORT INFORMATION
  Report Type: 
  Country: None (occurrence: None)
  Receive Date: 20100205
  Receipt Date: 20100125
  Transmission Date: 20100710
  Serious: Yes (Death)
  Sender: FDA-Public Use
  Company Number: GB-JNJFOC-20080802557

PATIENT
  Age: 3 Year
  Sex: Female

DRUGS (2)
  1. PARACETAMOL [Suspect]
     Route: 048
  2. PARACETAMOL [Suspect]
     Indication: DRUG USE FOR UNKNOWN INDICATION
     Dosage: 5 GRAMS (DURATION OF TREATMENT WAS ONE DAY)
     Route: 048

REACTIONS (2)
  - LIVER INJURY [None]
  - OVERDOSE [None]
